FAERS Safety Report 5246147-1 (Version None)
Quarter: 2007Q1

REPORT INFORMATION
  Report Type: 
  Country: None (occurrence: None)
  Receive Date: 20070220
  Receipt Date: 20070209
  Transmission Date: 20070707
  Serious: Yes (Other)
  Sender: FDA-Public Use
  Company Number: GXKR2007DE01510

PATIENT
  Age: 39 Year
  Sex: Male

DRUGS (1)
  1. PAROXAT (NGX)(PAROXETINE) FILM-COATED TABLET [Suspect]
     Dosage: 10 MG, BID, ORAL
     Route: 048
     Dates: start: 20070207, end: 20070208

REACTIONS (6)
  - DIZZINESS [None]
  - HYPERHIDROSIS [None]
  - NAUSEA [None]
  - PANIC ATTACK [None]
  - PARAESTHESIA [None]
  - TREMOR [None]
